FAERS Safety Report 6292644-X (Version None)
Quarter: 2009Q3

REPORT INFORMATION
  Report Type: 
  Country: None (occurrence: None)
  Receive Date: 20090731
  Receipt Date: 20090728
  Transmission Date: 20100115
  Serious: Yes (Death)
  Sender: FDA-Public Use
  Company Number: JP-GILEAD-2008-0017524

PATIENT
  Sex: Male

DRUGS (7)
  1. VIREAD [Suspect]
     Indication: HIV INFECTION
     Route: 048
     Dates: start: 20040629, end: 20080709
  2. ZERIT [Concomitant]
     Indication: HIV INFECTION
     Dates: start: 20020812, end: 20080709
  3. NORVIR [Concomitant]
     Indication: HIV INFECTION
     Dates: start: 20020812, end: 20080716
  4. REYATAZ [Concomitant]
     Indication: HIV INFECTION
     Dates: start: 20040629, end: 20080709
  5. ZITHROMAX [Concomitant]
     Dates: end: 20080716
  6. BAKTAR [Concomitant]
     Dates: end: 20080716
  7. DIFLUCAN [Concomitant]
     Dates: end: 20080716

REACTIONS (1)
  - PROGRESSIVE MULTIFOCAL LEUKOENCEPHALOPATHY [None]
